FAERS Safety Report 23577101 (Version 3)
Quarter: 2024Q2

REPORT INFORMATION
  Report Type: Spontaneous
  Country: US (occurrence: US)
  Receive Date: 20240228
  Receipt Date: 20240423
  Transmission Date: 20240716
  Serious: Yes (Other)
  Sender: FDA-Public Use
  Company Number: US-PFIZER INC-PV202400027077

PATIENT
  Age: 71 Year
  Sex: Female
  Weight: 67.9 kg

DRUGS (2)
  1. IBRANCE [Suspect]
     Active Substance: PALBOCICLIB
     Indication: Breast cancer female
     Dosage: 125 MG
     Route: 048
  2. IBRANCE [Suspect]
     Active Substance: PALBOCICLIB
     Dosage: 75 MG ONCE DAILY, FOR 21 DAYS ON FOLLOWED BY 7 DAYS OFF
     Route: 048

REACTIONS (2)
  - Neutropenia [Unknown]
  - Product dispensing error [Unknown]
